FAERS Safety Report 23424469 (Version 2)
Quarter: 2025Q1

REPORT INFORMATION
  Report Type: Spontaneous
  Country: GB (occurrence: GB)
  Receive Date: 20240120
  Receipt Date: 20250226
  Transmission Date: 20250409
  Serious: Yes (Other)
  Sender: AUROBINDO
  Company Number: GB-MLMSERVICE-20240103-4757320-1

PATIENT
  Age: 15 Year
  Sex: Female

DRUGS (1)
  1. FLUOXETINE [Suspect]
     Active Substance: FLUOXETINE HYDROCHLORIDE
     Indication: Antidepressant therapy
     Route: 065

REACTIONS (3)
  - Intentional self-injury [Unknown]
  - Condition aggravated [Unknown]
  - Drug ineffective [Unknown]
